FAERS Safety Report 7372350-0 (Version None)
Quarter: 2011Q1

REPORT INFORMATION
  Report Type: 
  Country: None (occurrence: None)
  Receive Date: 20110324
  Receipt Date: 20110316
  Transmission Date: 20110831
  Serious: Yes (Other)
  Sender: FDA-Public Use
  Company Number: B0707832A

PATIENT
  Sex: Female

DRUGS (2)
  1. SERETIDE [Suspect]
     Route: 055
  2. VENTOLIN [Suspect]
     Route: 055

REACTIONS (3)
  - TREATMENT NONCOMPLIANCE [None]
  - BRONCHOSPASM [None]
  - OBSTRUCTIVE AIRWAYS DISORDER [None]
